FAERS Safety Report 8404524-1 (Version None)
Quarter: 2012Q2

REPORT INFORMATION
  Report Type: 
  Country: None (occurrence: None)
  Receive Date: 20120601
  Receipt Date: 20111125
  Transmission Date: 20120825
  Serious: No
  Sender: FDA-Public Use
  Company Number: US-NOVEN-11US003687

PATIENT
  Age: 6 Year
  Sex: Male

DRUGS (3)
  1. DAYTRANA [Suspect]
     Indication: ATTENTION DEFICIT/HYPERACTIVITY DISORDER
     Dosage: 10 MG, QD FOR 9 HOURS
     Route: 062
  2. DAYTRANA [Suspect]
     Dosage: 10 MG, QD FOR 9 HOURS
     Route: 062
     Dates: start: 20101101
  3. CLARITIN [Concomitant]
     Indication: SINUSITIS
     Dosage: Q HS
     Route: 048

REACTIONS (2)
  - MUSCLE RIGIDITY [None]
  - AGGRESSION [None]
